FAERS Safety Report 18627884 (Version 2)
Quarter: 2020Q4

REPORT INFORMATION
  Report Type: Spontaneous
  Country: CN (occurrence: CN)
  Receive Date: 20201217
  Receipt Date: 20201222
  Transmission Date: 20210114
  Serious: Yes (Hospitalization, Other)
  Sender: FDA-Public Use
  Company Number: CN-PFIZER INC-2020488180

PATIENT
  Age: 24 Year
  Sex: Male
  Weight: 52.2 kg

DRUGS (10)
  1. TIGECYCLINE. [Interacting]
     Active Substance: TIGECYCLINE
     Dosage: 100 MG, 2X/DAY
     Route: 042
     Dates: start: 201811, end: 201811
  2. TACROLIMUS. [Interacting]
     Active Substance: TACROLIMUS
     Indication: IMMUNOSUPPRESSANT DRUG THERAPY
     Dosage: 4 MG, DAILY
     Dates: start: 201811, end: 2018
  3. MYCOPHENOLATE SODIUM [Suspect]
     Active Substance: MYCOPHENOLATE SODIUM
     Indication: IMMUNOSUPPRESSANT DRUG THERAPY
     Dosage: 1440 MG, DAILY (ENTERIC-COATED)
     Dates: start: 201811, end: 201811
  4. MYCOPHENOLATE SODIUM [Suspect]
     Active Substance: MYCOPHENOLATE SODIUM
     Dosage: SMALL DOSES ENTERIC-COATED
     Dates: start: 201811, end: 201812
  5. METHYLPREDNISOLONE. [Concomitant]
     Active Substance: METHYLPREDNISOLONE
     Indication: IMMUNOSUPPRESSANT DRUG THERAPY
     Dosage: UNK
     Dates: start: 201811
  6. TACROLIMUS. [Interacting]
     Active Substance: TACROLIMUS
     Dosage: 0.5 MG TWICE DAILY (FREQ:12 H)
     Route: 048
     Dates: start: 201811, end: 201811
  7. CASPOFUNGIN [Concomitant]
     Active Substance: CASPOFUNGIN
     Indication: PROPHYLAXIS
     Dosage: 50 MG, DAILY
     Dates: start: 201811
  8. TACROLIMUS. [Interacting]
     Active Substance: TACROLIMUS
     Dosage: ON DAY 24
     Dates: start: 2018, end: 201901
  9. MEROPENEM. [Concomitant]
     Active Substance: MEROPENEM
     Indication: PROPHYLAXIS
     Dosage: 1 G, 3X/DAY (FREQ:8 H)
     Dates: start: 201811
  10. TIGECYCLINE. [Suspect]
     Active Substance: TIGECYCLINE
     Indication: ENTEROCOCCAL INFECTION
     Dosage: 200 MG, SINGLE
     Route: 042
     Dates: start: 201811

REACTIONS (4)
  - Off label use [Unknown]
  - Drug interaction [Recovering/Resolving]
  - Pancreatitis acute [Recovering/Resolving]
  - Immunosuppressant drug level increased [Recovering/Resolving]

NARRATIVE: CASE EVENT DATE: 201811
